FAERS Safety Report 8341983-7 (Version None)
Quarter: 2012Q2

REPORT INFORMATION
  Report Type: 
  Country: None (occurrence: None)
  Receive Date: 20120507
  Receipt Date: 20120430
  Transmission Date: 20120825
  Serious: Yes (Other)
  Sender: FDA-Public Use
  Company Number: US-BAYER-2012-042278

PATIENT
  Age: 73 Year
  Sex: Female
  Weight: 79.365 kg

DRUGS (2)
  1. NAPROXEN SODIUM [Suspect]
     Indication: ANALGESIC THERAPY
     Dosage: 2 DF, QD
     Route: 048
     Dates: start: 20120215, end: 20120430
  2. LEVOXYL [Concomitant]

REACTIONS (1)
  - HAEMATOCHEZIA [None]
